FAERS Safety Report 12123863 (Version 1)
Quarter: 2016Q1

REPORT INFORMATION
  Report Type: Spontaneous
  Country: GB (occurrence: GB)
  Receive Date: 20160228
  Receipt Date: 20160228
  Transmission Date: 20160526
  Serious: Yes (Other)
  Sender: FDA-Public Use
  Company Number: GB-DEXPHARM-20160193

PATIENT
  Age: 54 Year
  Sex: Female
  Weight: 56.69 kg

DRUGS (8)
  1. FLIXONASE [Concomitant]
     Active Substance: FLUTICASONE PROPIONATE
  2. PREGABALIN. [Concomitant]
     Active Substance: PREGABALIN
  3. EVOREL SEQUI [Concomitant]
     Active Substance: ESTRADIOL\NORETHINDRONE ACETATE
  4. OMEPRAZOLE. [Suspect]
     Active Substance: OMEPRAZOLE
     Indication: PRODUCT USED FOR UNKNOWN INDICATION
  5. ARCOXIA [Concomitant]
     Active Substance: ETORICOXIB
     Dosage: TAKEN FOR 5-10 YEARS
  6. VESICARE [Suspect]
     Active Substance: SOLIFENACIN SUCCINATE
     Indication: URINARY INCONTINENCE
     Dosage: DAILY DOSE: 1 DF DOSAGE FORM EVERY DAYS
     Route: 048
     Dates: start: 2015
  7. BUTRANS [Concomitant]
     Active Substance: BUPRENORPHINE
  8. ZOLPIDEM TARTRATE. [Concomitant]
     Active Substance: ZOLPIDEM TARTRATE

REACTIONS (3)
  - Decreased appetite [Not Recovered/Not Resolved]
  - Dyspepsia [Not Recovered/Not Resolved]
  - Gastrointestinal pain [Not Recovered/Not Resolved]
